FAERS Safety Report 9177120 (Version 1)
Quarter: 2013Q1

REPORT INFORMATION
  Report Type: Spontaneous
  Country: US (occurrence: None)
  Receive Date: 20130320
  Receipt Date: 20130320
  Transmission Date: 20140127
  Serious: Yes (Hospitalization)
  Sender: FDA-Public Use
  Company Number: None

PATIENT
  Sex: Male

DRUGS (1)
  1. CARBAGLU (CARGLUMIC ACID) [Suspect]
     Dosage: QD
     Route: 048
     Dates: start: 20110524

REACTIONS (1)
  - Hospitalisation [None]
